FAERS Safety Report 5642841-9 (Version None)
Quarter: 2008Q1

REPORT INFORMATION
  Report Type: 
  Country: None (occurrence: None)
  Receive Date: 20080226
  Receipt Date: 20080207
  Transmission Date: 20080703
  Serious: Yes (Hospitalization, Other)
  Sender: FDA-Public Use
  Company Number: 2008S1002309

PATIENT
  Age: 50 Year
  Sex: Male

DRUGS (1)
  1. ACYCLOVIR [Suspect]
     Indication: NECROTISING RETINITIS
     Dosage: 850 MG; 3 TIMES A DAY; INTRAVENOUS
     Route: 042

REACTIONS (3)
  - HYPOAESTHESIA [None]
  - NEUROTOXICITY [None]
  - PARAESTHESIA [None]
